FAERS Safety Report 5545720-0 (Version None)
Quarter: 2007Q4

REPORT INFORMATION
  Report Type: 
  Country: None (occurrence: None)
  Receive Date: 20071206
  Receipt Date: 20071206
  Transmission Date: 20080405
  Serious: Yes (Life-Threatening)
  Sender: FDA-Public Use
  Company Number: None

PATIENT
  Age: 70 Year
  Sex: Female
  Weight: 55.3388 kg

DRUGS (2)
  1. CARDIZEM [Suspect]
     Indication: ATRIAL FIBRILLATION
     Dosage: 240 MG ONCE A DAY BY MOUTH
     Route: 048
     Dates: start: 20061001, end: 20071001
  2. CARDIZEM [Suspect]
     Indication: BLOOD PRESSURE
     Dosage: 240 MG ONCE A DAY BY MOUTH
     Route: 048
     Dates: start: 20061001, end: 20071001

REACTIONS (7)
  - ANOREXIA [None]
  - ASTHENIA [None]
  - DIZZINESS [None]
  - FATIGUE [None]
  - MALNUTRITION [None]
  - NAUSEA [None]
  - WEIGHT DECREASED [None]
